FAERS Safety Report 16807269 (Version 1)
Quarter: 2019Q3

REPORT INFORMATION
  Report Type: Spontaneous
  Country: CN (occurrence: CN)
  Receive Date: 20190913
  Receipt Date: 20190913
  Transmission Date: 20191005
  Serious: Yes (Other)
  Sender: FDA-Public Use
  Company Number: CN-009507513-1909CHN002654

PATIENT
  Age: 87 Year
  Sex: Male
  Weight: 50 kg

DRUGS (2)
  1. SODIUM CHLORIDE. [Concomitant]
     Active Substance: SODIUM CHLORIDE
     Dosage: 100 MILLILITER, Q12H
     Route: 041
     Dates: start: 20190822, end: 20190827
  2. TIENAM [Suspect]
     Active Substance: CILASTATIN SODIUM\IMIPENEM
     Indication: BRONCHITIS
     Dosage: 1 GRAM, Q12H
     Route: 041
     Dates: start: 20190822, end: 20190827

REACTIONS (1)
  - Epilepsy [Recovered/Resolved]

NARRATIVE: CASE EVENT DATE: 20190827
